FAERS Safety Report 4535344-6 (Version None)
Quarter: 2004Q4

REPORT INFORMATION
  Report Type: 
  Country: None (occurrence: None)
  Receive Date: 20041214
  Receipt Date: 20040913
  Transmission Date: 20050328
  Serious: No
  Sender: FDA-Public Use
  Company Number: 2004235833US

PATIENT
  Age: 66 Year
  Sex: Male
  Weight: 83.9 kg

DRUGS (2)
  1. BEXTRA [Suspect]
     Indication: ARTHRALGIA
     Dosage: 10 MG, QD, ORAL
     Route: 048
     Dates: start: 20040910, end: 20040911
  2. DOCUSATE SODIUM (DOCUSATE SODUIM) [Concomitant]

REACTIONS (4)
  - DRUG INEFFECTIVE [None]
  - NASAL DRYNESS [None]
  - OROPHARYNGEAL SWELLING [None]
  - RHINORRHOEA [None]
